FAERS Safety Report 8490095-0 (Version None)
Quarter: 2012Q3

REPORT INFORMATION
  Report Type: 
  Country: None (occurrence: None)
  Receive Date: 20120705
  Receipt Date: 20120625
  Transmission Date: 20120928
  Serious: Yes (Other)
  Sender: FDA-Public Use
  Company Number: US-ASTRAZENECA-2012SE42962

PATIENT
  Sex: Female
  Weight: 82.1 kg

DRUGS (5)
  1. SYNTHROID [Concomitant]
  2. AMLODIPINE BESYLATE AND BENAZEPRIL HYDROCHLORIDE [Concomitant]
     Dosage: EVERYDAY
  3. SYMBICORT [Suspect]
     Dosage: 160/4.5 MCG/ACT 2 PUFFS TWICE DAILY
     Route: 055
  4. HYDROXYCHLOROQUINE SULFATE [Concomitant]
  5. VENTOLIN HFA [Concomitant]
     Dosage: 108 (90 BASE) MCG/AC, 2 PUFFS BY MOUTH EVERY 6 HOURS AS NEEDED
     Route: 055

REACTIONS (2)
  - LUNG NEOPLASM MALIGNANT [None]
  - CHRONIC OBSTRUCTIVE PULMONARY DISEASE [None]
